FAERS Safety Report 4572868-X (Version None)
Quarter: 2005Q1

REPORT INFORMATION
  Report Type: 
  Country: None (occurrence: None)
  Receive Date: 20050208
  Receipt Date: 20040629
  Transmission Date: 20050727
  Serious: No
  Sender: FDA-Public Use
  Company Number: US-GLAXOSMITHKLINE-A0518183A

PATIENT
  Sex: Female

DRUGS (1)
  1. PAXIL [Suspect]
     Indication: DRUG USE FOR UNKNOWN INDICATION
     Route: 048
     Dates: start: 19920101

REACTIONS (6)
  - CONSTIPATION [None]
  - DRUG WITHDRAWAL SYNDROME [None]
  - MUSCLE DISORDER [None]
  - MUSCLE TWITCHING [None]
  - VERTIGO [None]
  - VISUAL DISTURBANCE [None]
